FAERS Safety Report 11276177 (Version 2)
Quarter: 2015Q4

REPORT INFORMATION
  Report Type: Spontaneous
  Country: JP (occurrence: JP)
  Receive Date: 20150716
  Receipt Date: 20151001
  Transmission Date: 20160304
  Serious: Yes (Death)
  Sender: FDA-Public Use
  Company Number: JP-DSJP-DSJ-2015-122451

PATIENT

DRUGS (8)
  1. TAMSULOSIN [Concomitant]
     Active Substance: TAMSULOSIN
     Dosage: 1 DF, QD
     Route: 065
  2. OLOPATADINE [Concomitant]
     Active Substance: OLOPATADINE
     Dosage: 1 DF, QD
     Route: 065
  3. LIXIANA TABLETS 30MG [Suspect]
     Active Substance: EDOXABAN TOSILATE MONOHYDRATE
     Indication: ATRIAL FIBRILLATION
     Dosage: 30 MG, QD
     Route: 048
     Dates: start: 20150604, end: 20150622
  4. FLUTORIA [Concomitant]
     Dosage: 1 DF, QD
     Route: 065
  5. MAINTATE [Concomitant]
     Active Substance: BISOPROLOL FUMARATE
     Dosage: 1.25-0.625/DAY
     Route: 048
  6. LOXONIN TABLETS 60MG [Concomitant]
     Active Substance: LOXOPROFEN
     Dosage: 60 MG, QD
     Route: 048
     Dates: end: 20150618
  7. HALFDIGOXIN [Concomitant]
     Active Substance: DIGOXIN
     Dosage: 1 DF, QD
     Route: 065
  8. LANSOPRAZOLE. [Concomitant]
     Active Substance: LANSOPRAZOLE
     Dosage: 1 DF, QD
     Route: 065

REACTIONS (1)
  - Sudden death [Fatal]

NARRATIVE: CASE EVENT DATE: 20150622
